FAERS Safety Report 10067073 (Version 2)
Quarter: 2016Q4

REPORT INFORMATION
  Report Type: Report from Study
  Country: US (occurrence: US)
  Receive Date: 20140409
  Receipt Date: 20161006
  Transmission Date: 20170206
  Serious: Yes (Hospitalization, Other)
  Sender: FDA-Public Use
  Company Number: US-ROCHE-1376746

PATIENT
  Sex: Female
  Weight: 64 kg

DRUGS (25)
  1. BEVACIZUMAB [Suspect]
     Active Substance: BEVACIZUMAB
     Indication: OVARIAN EPITHELIAL CANCER
     Dosage: CYCLE 2-6?LAST ADMINISTERED DOSE: 08/JAN/2014, 960 MG
     Route: 042
     Dates: start: 20121031
  2. BEVACIZUMAB [Suspect]
     Active Substance: BEVACIZUMAB
     Route: 042
     Dates: start: 20130123
  3. BEVACIZUMAB [Suspect]
     Active Substance: BEVACIZUMAB
     Dosage: CYCLE 6
     Route: 042
     Dates: start: 20130301
  4. BEVACIZUMAB [Suspect]
     Active Substance: BEVACIZUMAB
     Dosage: CYCLE 13
     Route: 042
     Dates: start: 20130905
  5. VELIPARIB [Suspect]
     Active Substance: VELIPARIB
     Dosage: CYCLE 6
     Route: 048
     Dates: start: 20130301
  6. LISINOPRIL. [Suspect]
     Active Substance: LISINOPRIL
     Indication: PRODUCT USED FOR UNKNOWN INDICATION
     Route: 065
  7. BEVACIZUMAB [Suspect]
     Active Substance: BEVACIZUMAB
     Dosage: CYCLE 10
     Route: 042
     Dates: start: 20130522
  8. VELIPARIB [Suspect]
     Active Substance: VELIPARIB
     Dosage: CYCLE 5
     Route: 048
     Dates: start: 20130123
  9. BEVACIZUMAB [Suspect]
     Active Substance: BEVACIZUMAB
     Dosage: 3RD CYCLE
     Route: 042
     Dates: start: 20121212
  10. BEVACIZUMAB [Suspect]
     Active Substance: BEVACIZUMAB
     Dosage: CYCLE 7
     Route: 042
     Dates: start: 20130321
  11. BEVACIZUMAB [Suspect]
     Active Substance: BEVACIZUMAB
     Dosage: CYCLE 12
     Route: 042
     Dates: start: 20130808
  12. VELIPARIB [Suspect]
     Active Substance: VELIPARIB
     Dosage: CYCLE 2
     Route: 048
     Dates: start: 20121119
  13. VELIPARIB [Suspect]
     Active Substance: VELIPARIB
     Dosage: CYCLE 3
     Route: 048
     Dates: start: 20121212
  14. PACLITAXEL. [Suspect]
     Active Substance: PACLITAXEL
     Indication: OVARIAN EPITHELIAL CANCER
     Dosage: CYCLE 1 AND CYCLE 2-6
     Route: 042
  15. BEVACIZUMAB [Suspect]
     Active Substance: BEVACIZUMAB
     Dosage: 2ND CYCLE
     Route: 042
     Dates: start: 20121119
  16. BEVACIZUMAB [Suspect]
     Active Substance: BEVACIZUMAB
     Dosage: CYCLE 4
     Route: 042
     Dates: start: 20130102
  17. BEVACIZUMAB [Suspect]
     Active Substance: BEVACIZUMAB
     Dosage: CYCLE 14
     Route: 042
     Dates: start: 20130926
  18. VELIPARIB [Suspect]
     Active Substance: VELIPARIB
     Indication: OVARIAN EPITHELIAL CANCER
     Dosage: IN CYCLE 1 AND CYCLE 2-6
     Route: 048
     Dates: start: 20121031
  19. VELIPARIB [Suspect]
     Active Substance: VELIPARIB
     Dosage: CYCLE 4
     Route: 048
     Dates: start: 20130102
  20. BEVACIZUMAB [Suspect]
     Active Substance: BEVACIZUMAB
     Dosage: CYCLE 8
     Route: 042
     Dates: start: 20130411
  21. BEVACIZUMAB [Suspect]
     Active Substance: BEVACIZUMAB
     Dosage: COURSE 16
     Route: 042
     Dates: start: 20131106
  22. BEVACIZUMAB [Suspect]
     Active Substance: BEVACIZUMAB
     Dosage: COURSE 17
     Route: 042
     Dates: start: 20131127
  23. BEVACIZUMAB [Suspect]
     Active Substance: BEVACIZUMAB
     Dosage: CYCLE 9
     Route: 042
     Dates: start: 20130501
  24. BEVACIZUMAB [Suspect]
     Active Substance: BEVACIZUMAB
     Dosage: COURSE 15
     Route: 042
     Dates: start: 20131016
  25. CARBOPLATIN. [Suspect]
     Active Substance: CARBOPLATIN
     Indication: OVARIAN EPITHELIAL CANCER
     Dosage: AUC=6?CYCLE 1 AND CYCLE 2-6
     Route: 042

REACTIONS (4)
  - White blood cell count decreased [Unknown]
  - Neutrophil count decreased [Unknown]
  - Hyponatraemia [Recovering/Resolving]
  - Platelet count decreased [Unknown]
